FAERS Safety Report 24115518 (Version 1)
Quarter: 2024Q3

REPORT INFORMATION
  Report Type: Spontaneous
  Country: US (occurrence: US)
  Receive Date: 20240721
  Receipt Date: 20240721
  Transmission Date: 20241016
  Serious: Yes (Hospitalization)
  Sender: NOVO NORDISK
  Company Number: US-NOVOPROD-1223126

PATIENT
  Age: 35 Year
  Sex: Male

DRUGS (1)
  1. WEGOVY [Suspect]
     Active Substance: SEMAGLUTIDE
     Indication: Product used for unknown indication
     Dosage: 0.25 MG(ONCE WEEKLY)
     Route: 058
     Dates: start: 20240416

REACTIONS (2)
  - Impaired gastric emptying [Unknown]
  - Inappropriate schedule of product administration [Unknown]
